FAERS Safety Report 8298139-6 (Version None)
Quarter: 2012Q2

REPORT INFORMATION
  Report Type: 
  Country: None (occurrence: None)
  Receive Date: 20120419
  Receipt Date: 20120326
  Transmission Date: 20120825
  Serious: Yes (Hospitalization)
  Sender: FDA-Public Use
  Company Number: US-BAYER-2012-027397

PATIENT
  Age: 22 Year
  Sex: Female
  Weight: 63.9 kg

DRUGS (15)
  1. ASPIRIN [Concomitant]
  2. FOLIC ACID [Concomitant]
  3. YAZ [Suspect]
     Dosage: UNK
     Dates: start: 20060601, end: 20090301
  4. PREDNISONE TAB [Concomitant]
  5. SENNA [Concomitant]
  6. ZYVOX [Concomitant]
  7. AMBIEN [Concomitant]
  8. FLEXERIL [Concomitant]
  9. PERCOCET [Concomitant]
  10. IBUPROFEN [Concomitant]
  11. NOVOLOG [Concomitant]
  12. CIPROFLOXACIN HCL [Concomitant]
  13. COLACE [Concomitant]
  14. PEPCID [Concomitant]
  15. BENADRYL [Concomitant]

REACTIONS (8)
  - ARTERIAL THROMBOSIS LIMB [None]
  - ILIAC ARTERY THROMBOSIS [None]
  - PERIPHERAL ISCHAEMIA [None]
  - INJURY [None]
  - PAIN [None]
  - ANXIETY [None]
  - EMOTIONAL DISTRESS [None]
  - GENERAL PHYSICAL HEALTH DETERIORATION [None]
